FAERS Safety Report 21491581 (Version 1)
Quarter: 2022Q4

REPORT INFORMATION
  Report Type: Report from Study
  Country: US (occurrence: US)
  Receive Date: 20221021
  Receipt Date: 20221021
  Transmission Date: 20230112
  Serious: No
  Sender: FDA-Public Use
  Company Number: US-ABBVIE-4145808

PATIENT
  Sex: Female

DRUGS (1)
  1. HUMIRA [Suspect]
     Active Substance: ADALIMUMAB
     Indication: Ankylosing spondylitis
     Dosage: FORM STRENGTH: 40MG
     Route: 058
     Dates: start: 202110

REACTIONS (5)
  - Joint range of motion decreased [Unknown]
  - Joint stiffness [Unknown]
  - Musculoskeletal discomfort [Unknown]
  - Drug ineffective [Unknown]
  - Cartilage atrophy [Unknown]

NARRATIVE: CASE EVENT DATE: 20220101
